APPROVED DRUG PRODUCT: TALACEN
Active Ingredient: ACETAMINOPHEN; PENTAZOCINE HYDROCHLORIDE
Strength: 650MG;EQ 25MG BASE
Dosage Form/Route: TABLET;ORAL
Application: N018458 | Product #001
Applicant: SANOFI AVENTIS US LLC
Approved: Sep 23, 1982 | RLD: No | RS: No | Type: DISCN